FAERS Safety Report 10437575 (Version 2)
Quarter: 2014Q3

REPORT INFORMATION
  Report Type: Spontaneous
  Country: US (occurrence: US)
  Receive Date: 20140908
  Receipt Date: 20140908
  Transmission Date: 20150326
  Serious: No
  Sender: FDA-Public Use
  Company Number: US-BRISTOL-MYERS SQUIBB COMPANY-20441580

PATIENT
  Age: 46 Year
  Sex: Female
  Weight: 84.8 kg

DRUGS (1)
  1. ABILIFY [Suspect]
     Active Substance: ARIPIPRAZOLE
     Indication: BIPOLAR DISORDER
     Dosage: 15MG: 1/2 TAB MORNING, 1/2 TAB AT BEDTIME:ONGOING

REACTIONS (1)
  - Wrong technique in drug usage process [Unknown]
